FAERS Safety Report 17847983 (Version 2)
Quarter: 2020Q2

REPORT INFORMATION
  Report Type: Spontaneous
  Country: CZ (occurrence: CZ)
  Receive Date: 20200601
  Receipt Date: 20200618
  Transmission Date: 20200714
  Serious: Yes (Other)
  Sender: FDA-Public Use
  Company Number: CZ-ELI_LILLY_AND_COMPANY-CZ201911013668

PATIENT
  Age: 45 Year
  Sex: Female

DRUGS (3)
  1. PEMETREXED. [Suspect]
     Active Substance: PEMETREXED
     Indication: NON-SMALL CELL LUNG CANCER
     Dosage: 500 MG/M2, UNKNOWN
     Route: 065
     Dates: start: 20181010
  2. VARGATEF [Suspect]
     Active Substance: NINTEDANIB
     Indication: NON-SMALL CELL LUNG CANCER
     Dosage: UNK, UNKNOWN
     Route: 065
     Dates: start: 20181220
  3. CRIZOTINIB [Concomitant]
     Active Substance: CRIZOTINIB
     Indication: NON-SMALL CELL LUNG CANCER
     Dosage: 500 MG, BID
     Route: 065
     Dates: start: 20181031

REACTIONS (7)
  - Pericardial effusion malignant [Unknown]
  - Drug resistance [Unknown]
  - Ascites [Unknown]
  - Pneumonia [Unknown]
  - Malignant neoplasm progression [Not Recovered/Not Resolved]
  - Hypoalbuminaemia [Unknown]
  - Generalised oedema [Unknown]

NARRATIVE: CASE EVENT DATE: 20181125
